FAERS Safety Report 20864521 (Version 3)
Quarter: 2022Q4

REPORT INFORMATION
  Report Type: Spontaneous
  Country: US (occurrence: US)
  Receive Date: 20220524
  Receipt Date: 20221003
  Transmission Date: 20230113
  Serious: Yes (Other)
  Sender: FDA-Public Use
  Company Number: US-GILEAD-2022-0582426

PATIENT
  Sex: Male
  Weight: 109.75 kg

DRUGS (36)
  1. ATRIPLA [Suspect]
     Active Substance: EFAVIRENZ\EMTRICITABINE\TENOFOVIR DISOPROXIL FUMARATE
     Indication: HIV infection
     Dosage: UNK
     Route: 048
     Dates: start: 2014
  2. ATRIPLA [Suspect]
     Active Substance: EFAVIRENZ\EMTRICITABINE\TENOFOVIR DISOPROXIL FUMARATE
     Dosage: UNK
     Route: 065
     Dates: start: 2015, end: 201908
  3. BIKTARVY [Concomitant]
     Active Substance: BICTEGRAVIR SODIUM\EMTRICITABINE\TENOFOVIR ALAFENAMIDE FUMARATE
  4. COMBIVIR [Concomitant]
     Active Substance: LAMIVUDINE\ZIDOVUDINE
  5. SUSTIVA [Concomitant]
     Active Substance: EFAVIRENZ
  6. CARVEDILOL [Concomitant]
     Active Substance: CARVEDILOL
  7. NAPROXEN [Concomitant]
     Active Substance: NAPROXEN
  8. HYDROCODONE [Concomitant]
     Active Substance: HYDROCODONE
  9. CIPROFLOXACIN [Concomitant]
     Active Substance: CIPROFLOXACIN
  10. CLOTRIMAZOLE [Concomitant]
     Active Substance: CLOTRIMAZOLE
  11. ALLOPURINOL [Concomitant]
     Active Substance: ALLOPURINOL
  12. ZANAFLEX [Concomitant]
     Active Substance: TIZANIDINE HYDROCHLORIDE
  13. MORPHINE [Concomitant]
     Active Substance: MORPHINE
  14. GEMFIBROZIL [Concomitant]
     Active Substance: GEMFIBROZIL
  15. KETOCONAZOLE [Concomitant]
     Active Substance: KETOCONAZOLE
  16. MELOXICAM [Concomitant]
     Active Substance: MELOXICAM
  17. OFLOXACIN [Concomitant]
     Active Substance: OFLOXACIN
  18. CEPHALEXIN [Concomitant]
     Active Substance: CEPHALEXIN
  19. AMOXICILLIN\CLAVULANIC ACID [Concomitant]
     Active Substance: AMOXICILLIN\CLAVULANIC ACID
  20. WIXELA INHUB [Concomitant]
     Active Substance: FLUTICASONE PROPIONATE\SALMETEROL XINAFOATE
  21. FENOFIBRATE [Concomitant]
     Active Substance: FENOFIBRATE
  22. NEOMYCIN [Concomitant]
     Active Substance: NEOMYCIN
  23. XANAX [Concomitant]
     Active Substance: ALPRAZOLAM
  24. ALBUTEROL [Concomitant]
     Active Substance: ALBUTEROL
  25. SIMVASTATIN [Concomitant]
     Active Substance: SIMVASTATIN
  26. ACYCLOVIR [Concomitant]
     Active Substance: ACYCLOVIR
  27. VITAMIN D3 [Concomitant]
     Active Substance: CHOLECALCIFEROL
  28. VITAMIN B12 [Concomitant]
     Active Substance: CYANOCOBALAMIN
  29. CITALOPRAM [Concomitant]
     Active Substance: CITALOPRAM HYDROBROMIDE
  30. FLUTICASONE [Concomitant]
     Active Substance: FLUTICASONE
  31. LACTULOSE [Concomitant]
     Active Substance: LACTULOSE
  32. ATORVASTATIN [Concomitant]
     Active Substance: ATORVASTATIN
  33. HARVONI [Concomitant]
     Active Substance: LEDIPASVIR\SOFOSBUVIR
  34. NARCAN [Concomitant]
     Active Substance: NALOXONE HYDROCHLORIDE
  35. CANNABIS SATIVA SUBSP. INDICA TOP [Concomitant]
     Active Substance: CANNABIS SATIVA SUBSP. INDICA TOP
  36. HYDROCHLOROTHIAZIDE [Concomitant]
     Active Substance: HYDROCHLOROTHIAZIDE

REACTIONS (14)
  - Chronic kidney disease [Not Recovered/Not Resolved]
  - Erectile dysfunction [Not Recovered/Not Resolved]
  - Carotid artery disease [Not Recovered/Not Resolved]
  - Anaemia [Not Recovered/Not Resolved]
  - Bone density decreased [Unknown]
  - Pain [Not Recovered/Not Resolved]
  - Emotional distress [Not Recovered/Not Resolved]
  - Anxiety [Not Recovered/Not Resolved]
  - Anhedonia [Not Recovered/Not Resolved]
  - Constipation [Not Recovered/Not Resolved]
  - Impaired work ability [Not Recovered/Not Resolved]
  - Gait disturbance [Not Recovered/Not Resolved]
  - Dysstasia [Not Recovered/Not Resolved]
  - Loss of personal independence in daily activities [Not Recovered/Not Resolved]

NARRATIVE: CASE EVENT DATE: 20190101
